FAERS Safety Report 25958083 (Version 2)
Quarter: 2025Q4

REPORT INFORMATION
  Report Type: Spontaneous
  Country: NZ (occurrence: NZ)
  Receive Date: 20251024
  Receipt Date: 20251120
  Transmission Date: 20260117
  Serious: Yes (Hospitalization, Other)
  Sender: BRISTOL-MYERS SQUIBB COMPANY
  Company Number: NZ-BRISTOL-MYERS SQUIBB COMPANY-2025-144964

PATIENT
  Age: 58 Year
  Sex: Female

DRUGS (2)
  1. NIVOLUMAB [Suspect]
     Active Substance: NIVOLUMAB
     Indication: Colon cancer stage III
  2. NIVOLUMAB [Suspect]
     Active Substance: NIVOLUMAB
     Dosage: 70MLS/HR

REACTIONS (3)
  - Dizziness [Recovering/Resolving]
  - Flushing [Recovering/Resolving]
  - Back pain [Recovering/Resolving]

NARRATIVE: CASE EVENT DATE: 20250930
